FAERS Safety Report 24818758 (Version 1)
Quarter: 2025Q1

REPORT INFORMATION
  Report Type: Other
  Country: PE (occurrence: PE)
  Receive Date: 20250108
  Receipt Date: 20250108
  Transmission Date: 20250408
  Serious: Yes (Other)
  Sender: CREEKWOOD PHARMACEUTICALS LLC
  Company Number: PE-Creekwood Pharmaceuticals LLC-2168659

PATIENT
  Age: 52 Year
  Sex: Male

DRUGS (3)
  1. HYDROXYCHLOROQUINE SULFATE [Suspect]
     Active Substance: HYDROXYCHLOROQUINE SULFATE
     Indication: COVID-19
  2. IVERMECTIN [Suspect]
     Active Substance: IVERMECTIN
  3. TOCILIZUMAB [Suspect]
     Active Substance: TOCILIZUMAB

REACTIONS (2)
  - Hepatitis [Recovered/Resolved]
  - Product use in unapproved indication [Unknown]
